FAERS Safety Report 21413297 (Version 2)
Quarter: 2024Q2

REPORT INFORMATION
  Report Type: Report from Study
  Country: US (occurrence: US)
  Receive Date: 20221006
  Receipt Date: 20240516
  Transmission Date: 20240716
  Serious: Yes (Other)
  Sender: FDA-Public Use
  Company Number: US-ABBVIE-4133780

PATIENT
  Sex: Female

DRUGS (2)
  1. VENCLEXTA [Suspect]
     Active Substance: VENETOCLAX
     Indication: Breast cancer metastatic
     Dosage: TAKE 2 TABLET(S) BY MOUTH EVERY DAY WITH FOOD AND WATER AT THE SAME TIME EACH DAY
     Route: 048
  2. VIDAZA [Suspect]
     Active Substance: AZACITIDINE
     Indication: Product used for unknown indication
     Route: 065

REACTIONS (3)
  - Melanocytic naevus [Unknown]
  - Off label use [Unknown]
  - Pruritus [Unknown]
